FAERS Safety Report 6327833-9 (Version None)
Quarter: 2009Q3

REPORT INFORMATION
  Report Type: 
  Country: None (occurrence: None)
  Receive Date: 20090824
  Receipt Date: 20090814
  Transmission Date: 20100115
  Serious: Yes (Life-Threatening, Other)
  Sender: FDA-Public Use
  Company Number: 2009AL005458

PATIENT
  Age: 66 Year
  Sex: Female

DRUGS (8)
  1. RAMIPRIL [Suspect]
     Indication: HYPERTENSION
     Dosage: 5 MG; PO
     Route: 048
     Dates: start: 20090522, end: 20090711
  2. VESICARE [Concomitant]
  3. IBUPROFEN [Concomitant]
  4. ATENOLOL [Concomitant]
  5. NORETHISTERONE [Concomitant]
  6. SALBUTAMOL [Concomitant]
  7. BECONASE [Concomitant]
  8. EVOREL [Concomitant]

REACTIONS (2)
  - LIVER DISORDER [None]
  - PANCREATIC DISORDER [None]
